FAERS Safety Report 17002577 (Version 2)
Quarter: 2019Q4

REPORT INFORMATION
  Report Type: Spontaneous
  Country: BR (occurrence: BR)
  Receive Date: 20191107
  Receipt Date: 20191224
  Transmission Date: 20200122
  Serious: Yes (Other)
  Sender: FDA-Public Use
  Company Number: BR-AMGEN-BRASP2019184275

PATIENT
  Age: 51 Year
  Sex: Female

DRUGS (1)
  1. ENBREL [Suspect]
     Active Substance: ETANERCEPT
     Indication: PRODUCT USED FOR UNKNOWN INDICATION
     Dosage: UNK
     Route: 065
     Dates: end: 20190421

REACTIONS (6)
  - Arthritis [Unknown]
  - Decreased immune responsiveness [Unknown]
  - Rheumatic fever [Unknown]
  - Pyrexia [Unknown]
  - Viral infection [Unknown]
  - Fibromyalgia [Unknown]
